FAERS Safety Report 5133802-7 (Version None)
Quarter: 2006Q4

REPORT INFORMATION
  Report Type: 
  Country: None (occurrence: None)
  Receive Date: 20061018
  Receipt Date: 20061002
  Transmission Date: 20070319
  Serious: Yes (Hospitalization)
  Sender: FDA-Public Use
  Company Number: 23100331

PATIENT
  Sex: Female

DRUGS (1)
  1. ARGATROBAN [Suspect]
     Indication: PULMONARY EMBOLISM
     Dosage: 0.05 MCG/KG/MIN CONT IV
     Route: 042

REACTIONS (2)
  - ACTIVATED PARTIAL THROMBOPLASTIN TIME PROLONGED [None]
  - ACUTE HEPATIC FAILURE [None]
